FAERS Safety Report 18758722 (Version 1)
Quarter: 2021Q1

REPORT INFORMATION
  Report Type: Spontaneous
  Country: US (occurrence: US)
  Receive Date: 20210119
  Receipt Date: 20210119
  Transmission Date: 20210419
  Serious: No
  Sender: FDA-Public Use
  Company Number: US-AMNEAL PHARMACEUTICALS-2020-AMRX-03875

PATIENT
  Age: 72 Year
  Sex: Male
  Weight: 90 kg

DRUGS (1)
  1. SILDENAFIL. [Suspect]
     Active Substance: SILDENAFIL
     Indication: ERECTILE DYSFUNCTION
     Dosage: DAILY AS NEEDED
     Route: 048
     Dates: start: 20201205, end: 20201208

REACTIONS (2)
  - Product substitution issue [Unknown]
  - Drug ineffective [Unknown]

NARRATIVE: CASE EVENT DATE: 20201205
